FAERS Safety Report 10292158 (Version 2)
Quarter: 2014Q3

REPORT INFORMATION
  Report Type: Spontaneous
  Country: US (occurrence: US)
  Receive Date: 20140710
  Receipt Date: 20140710
  Transmission Date: 20150326
  Serious: No
  Sender: FDA-Public Use
  Company Number: US-PURDUE-USA-2013-0106388

PATIENT
  Age: 49 Year
  Sex: Male

DRUGS (3)
  1. KLONOPIN [Concomitant]
     Active Substance: CLONAZEPAM
     Indication: PRODUCT USED FOR UNKNOWN INDICATION
     Dosage: 1 MG, QID
     Route: 048
  2. BUTRANS [Suspect]
     Active Substance: BUPRENORPHINE
     Indication: PAIN IN EXTREMITY
     Dosage: 20 MCG/HR, WEEKLY
     Route: 062
     Dates: start: 2011
  3. TRAMADOL (SIMILAR TO NDA 21-745) [Concomitant]
     Active Substance: TRAMADOL
     Indication: PAIN IN EXTREMITY
     Dosage: 200 MG, QD
     Route: 048

REACTIONS (8)
  - Application site scar [Not Recovered/Not Resolved]
  - Application site discomfort [Not Recovered/Not Resolved]
  - Device leakage [Unknown]
  - Wrong technique in drug usage process [Unknown]
  - Application site odour [Unknown]
  - Application site discharge [Not Recovered/Not Resolved]
  - Application site nodule [Unknown]
  - Application site burn [Not Recovered/Not Resolved]

NARRATIVE: CASE EVENT DATE: 201302
